FAERS Safety Report 7153997-3 (Version None)
Quarter: 2010Q4

REPORT INFORMATION
  Report Type: 
  Country: None (occurrence: None)
  Receive Date: 20101124
  Receipt Date: 20101110
  Transmission Date: 20110411
  Serious: Yes (Other)
  Sender: FDA-Public Use
  Company Number: 2010004979

PATIENT
  Age: 50 Year
  Sex: Female

DRUGS (1)
  1. TARCEVA [Suspect]
     Indication: NON-SMALL CELL LUNG CANCER
     Dosage: (MG/KG, 1 IN 11 D), ORAL
     Route: 048
     Dates: start: 20100901

REACTIONS (1)
  - OPTIC NEURITIS [None]
